FAERS Safety Report 10389794 (Version 9)
Quarter: 2016Q1

REPORT INFORMATION
  Report Type: Report from Study
  Country: US (occurrence: US)
  Receive Date: 20140818
  Receipt Date: 20160114
  Transmission Date: 20160525
  Serious: Yes (Other)
  Sender: FDA-Public Use
  Company Number: US-ALEXION-A201403080

PATIENT
  Age: 67 Year
  Sex: Male

DRUGS (1)
  1. SOLIRIS [Suspect]
     Active Substance: ECULIZUMAB
     Indication: HAEMOLYTIC URAEMIC SYNDROME
     Dosage: UNK UNK, QMONTH
     Route: 042

REACTIONS (13)
  - Headache [Unknown]
  - Red cell distribution width increased [Unknown]
  - Chills [Not Recovered/Not Resolved]
  - Haemoglobin decreased [Unknown]
  - Mean cell haemoglobin concentration decreased [Unknown]
  - Mean platelet volume decreased [Unknown]
  - Blood potassium increased [Unknown]
  - Blood potassium increased [Unknown]
  - Blood creatinine increased [Not Recovered/Not Resolved]
  - Blood creatinine increased [Unknown]
  - Inappropriate schedule of drug administration [Unknown]
  - Haematocrit decreased [Unknown]
  - Diarrhoea [Not Recovered/Not Resolved]

NARRATIVE: CASE EVENT DATE: 20130723
